FAERS Safety Report 7340980-8 (Version None)
Quarter: 2011Q1

REPORT INFORMATION
  Report Type: 
  Country: None (occurrence: None)
  Receive Date: 20110309
  Receipt Date: 20100329
  Transmission Date: 20110831
  Serious: No
  Sender: FDA-Public Use
  Company Number: US-ABBOTT-10P-163-0636177-00

PATIENT
  Sex: Female
  Weight: 74.91 kg

DRUGS (4)
  1. LUPRON DEPOT [Suspect]
     Indication: UTERINE LEIOMYOMA
     Route: 030
     Dates: start: 20100303
  2. NORETHINDRONE [Concomitant]
     Indication: HORMONE REPLACEMENT THERAPY
  3. LORTAB [Concomitant]
     Indication: BACK DISORDER
  4. LOW OGESTRIL [Concomitant]
     Indication: UTERINE HAEMORRHAGE
     Route: 048
     Dates: end: 20100309

REACTIONS (7)
  - FEELING ABNORMAL [None]
  - HEADACHE [None]
  - HYPERHIDROSIS [None]
  - TREMOR [None]
  - UTERINE HAEMORRHAGE [None]
  - ASTHENIA [None]
  - HEART RATE INCREASED [None]
